FAERS Safety Report 10934717 (Version 2)
Quarter: 2015Q2

REPORT INFORMATION
  Report Type: Spontaneous
  Country: US (occurrence: US)
  Receive Date: 20150320
  Receipt Date: 20150605
  Transmission Date: 20150821
  Serious: No
  Sender: FDA-Public Use
  Company Number: US-TEVA-549064USA

PATIENT
  Age: 20 Year
  Sex: Female
  Weight: 63.56 kg

DRUGS (5)
  1. PARAGARD T 380A [Suspect]
     Active Substance: COPPER
     Indication: CONTRACEPTION
     Route: 015
     Dates: start: 20150120, end: 20150317
  2. PARAGARD T 380A [Suspect]
     Active Substance: COPPER
     Route: 015
     Dates: start: 20150317, end: 20150406
  3. SERTRALINE [Concomitant]
     Active Substance: SERTRALINE HYDROCHLORIDE
     Indication: PRODUCT USED FOR UNKNOWN INDICATION
     Dosage: 100 MILLIGRAM DAILY;
  4. GLYBURIDE. [Concomitant]
     Active Substance: GLYBURIDE
     Indication: HYPERGLYCAEMIA
     Dosage: 10 MILLIGRAM DAILY;
  5. METFORMIN [Concomitant]
     Active Substance: METFORMIN HYDROCHLORIDE
     Indication: HYPERGLYCAEMIA
     Dosage: 2000 MILLIGRAM DAILY;

REACTIONS (5)
  - Device expulsion [Recovered/Resolved]
  - Pain [Unknown]
  - Pelvic pain [Recovered/Resolved]
  - Dyspareunia [Unknown]
  - Abdominal discomfort [Recovered/Resolved]

NARRATIVE: CASE EVENT DATE: 20150317
